FAERS Safety Report 7844767-9 (Version None)
Quarter: 2011Q4

REPORT INFORMATION
  Report Type: 
  Country: None (occurrence: None)
  Receive Date: 20111025
  Receipt Date: 20111018
  Transmission Date: 20120403
  Serious: Yes (Other)
  Sender: FDA-Public Use
  Company Number: US-GLAXOSMITHKLINE-A0912268A

PATIENT
  Age: 85 Year
  Sex: Male

DRUGS (13)
  1. METOPROLOL TARTRATE [Concomitant]
  2. FUROSEMIDE [Concomitant]
  3. ASPIRIN [Concomitant]
  4. TYLENOL ES [Concomitant]
  5. ALBUTEROL SULFATE AND IPRATROPIUM BROMIDE [Concomitant]
     Dosage: 4PUFF PER DAY
     Route: 055
  6. ADVAIR DISKUS 100/50 [Suspect]
     Dosage: 1PUFF TWICE PER DAY
     Route: 055
     Dates: start: 20010101
  7. ZETIA [Concomitant]
  8. PRANDIN [Concomitant]
  9. PLAVIX [Concomitant]
  10. ADVAIR DISKUS 100/50 [Suspect]
     Indication: CHRONIC OBSTRUCTIVE PULMONARY DISEASE
     Dosage: 1PUFF TWICE PER DAY
     Route: 055
     Dates: start: 20110204, end: 20110206
  11. MEVACOR [Concomitant]
  12. NITROGLYCERIN [Concomitant]
  13. INSULIN [Concomitant]

REACTIONS (4)
  - DECREASED APPETITE [None]
  - APHAGIA [None]
  - CHEST DISCOMFORT [None]
  - CHEST PAIN [None]
